FAERS Safety Report 10481768 (Version 3)
Quarter: 2014Q4

REPORT INFORMATION
  Report Type: Spontaneous
  Country: JP (occurrence: JP)
  Receive Date: 20140929
  Receipt Date: 20141028
  Transmission Date: 20150528
  Serious: Yes (Other)
  Sender: FDA-Public Use
  Company Number: JP-PFIZER INC-2014266305

PATIENT
  Age: 10 Year
  Sex: Male
  Weight: 47.1 kg

DRUGS (6)
  1. TEGRETOL [Concomitant]
     Active Substance: CARBAMAZEPINE
     Dosage: 100 MG, DAILY
     Dates: start: 20140821
  2. SOLYUGEN [Concomitant]
     Dosage: UNK
     Dates: start: 20140819, end: 20140821
  3. STRONG NEO-MINOPHAGEN C [Concomitant]
     Active Substance: AMMONIUM GLYCYRRHIZATE\CYSTEINE HYDROCHLORIDE\GLYCINE
     Dosage: UNK
     Dates: start: 20140820, end: 20140822
  4. FOSPHENYTOIN SODIUM. [Suspect]
     Active Substance: FOSPHENYTOIN SODIUM
     Indication: SEIZURE
     Dosage: 750 MG, 1X/DAY
     Route: 042
     Dates: start: 20140819, end: 20140821
  5. FOSPHENYTOIN SODIUM. [Suspect]
     Active Substance: FOSPHENYTOIN SODIUM
     Dosage: 375 MG, 1X/DAY
     Route: 042
     Dates: start: 20140819, end: 20140821
  6. CEFAZOLIN [Suspect]
     Active Substance: CEFAZOLIN
     Indication: MUSCLE SPASMS
     Dosage: 0.5 G, 2X/DAY
     Route: 042
     Dates: start: 20140819, end: 20140821

REACTIONS (1)
  - Neutropenia [Recovered/Resolved]

NARRATIVE: CASE EVENT DATE: 20140822
